FAERS Safety Report 24079900 (Version 2)
Quarter: 2024Q3

REPORT INFORMATION
  Report Type: Spontaneous
  Country: US (occurrence: US)
  Receive Date: 20240711
  Receipt Date: 20240822
  Transmission Date: 20241016
  Serious: Yes (Other)
  Sender: BAYER
  Company Number: US-BAYER-2024A097644

PATIENT
  Age: 6 Year
  Sex: Male

DRUGS (2)
  1. KOVALTRY [Suspect]
     Active Substance: ANTIHEMOPHILIC FACTOR, HUMAN RECOMBINANT
     Dosage: 1116 UNITS/2000 UNITS
  2. KOVALTRY [Suspect]
     Active Substance: ANTIHEMOPHILIC FACTOR, HUMAN RECOMBINANT
     Dosage: 2 DF
     Dates: start: 20240803

REACTIONS (3)
  - Tooth socket haemorrhage [Recovered/Resolved]
  - Tooth loss [None]
  - Epistaxis [Recovered/Resolved]

NARRATIVE: CASE EVENT DATE: 20240615
